FAERS Safety Report 10089689 (Version 1)
Quarter: 2014Q2

REPORT INFORMATION
  Report Type: Spontaneous
  Country: US (occurrence: None)
  Receive Date: 20140418
  Receipt Date: 20140418
  Transmission Date: 20141212
  Serious: Yes (Hospitalization)
  Sender: FDA-Public Use
  Company Number: None

PATIENT
  Age: 73 Year
  Sex: Female
  Weight: 59.42 kg

DRUGS (1)
  1. TORISEL [Suspect]
     Route: 042

REACTIONS (3)
  - Hyperlipidaemia [None]
  - Blood triglycerides increased [None]
  - Blood cholesterol abnormal [None]
